FAERS Safety Report 15035235 (Version 1)
Quarter: 2018Q2

REPORT INFORMATION
  Report Type: Spontaneous
  Country: US (occurrence: US)
  Receive Date: 20180620
  Receipt Date: 20180620
  Transmission Date: 20180711
  Serious: No
  Sender: FDA-Public Use
  Company Number: US-AUROBINDO-AUR-APL-2018-020410

PATIENT
  Sex: Female

DRUGS (1)
  1. ATOMOXETINE CAPSULES USP 60 MG [Suspect]
     Active Substance: ATOMOXETINE
     Indication: PRODUCT USED FOR UNKNOWN INDICATION
     Route: 065

REACTIONS (8)
  - Mood altered [Unknown]
  - Dysphemia [Unknown]
  - Irritable bowel syndrome [Unknown]
  - Nervousness [Unknown]
  - Anxiety [Unknown]
  - Disturbance in attention [Unknown]
  - Product substitution issue [Unknown]
  - Stress [Unknown]
